FAERS Safety Report 10411441 (Version 1)
Quarter: 2014Q3

REPORT INFORMATION
  Report Type: Report from Study
  Country: US (occurrence: US)
  Receive Date: 20140827
  Receipt Date: 20140827
  Transmission Date: 20150326
  Serious: Yes (Hospitalization)
  Sender: FDA-Public Use
  Company Number: US-ROCHE-1454408

PATIENT
  Age: 44 Year
  Sex: Female

DRUGS (3)
  1. MYCOPHENOLATE MOFETIL. [Suspect]
     Active Substance: MYCOPHENOLATE MOFETIL
     Indication: RENAL TRANSPLANT
     Route: 048
     Dates: start: 20130510, end: 20130520
  2. BASILIXIMAB [Suspect]
     Active Substance: BASILIXIMAB
     Indication: RENAL TRANSPLANT
     Route: 042
     Dates: start: 20130509, end: 20130513
  3. ASKP1240 [Suspect]
     Active Substance: INVESTIGATIONAL PRODUCT
     Indication: RENAL TRANSPLANT
     Route: 042
     Dates: start: 20130509, end: 20130520

REACTIONS (1)
  - Kidney transplant rejection [Recovered/Resolved]

NARRATIVE: CASE EVENT DATE: 20130517
